FAERS Safety Report 20674301 (Version 1)
Quarter: 2022Q2

REPORT INFORMATION
  Report Type: Spontaneous
  Country: IN (occurrence: IN)
  Receive Date: 20220405
  Receipt Date: 20220405
  Transmission Date: 20220721
  Serious: Yes (Hospitalization)
  Sender: FDA-Public Use
  Company Number: IN-PFIZER INC-202200454510

PATIENT
  Age: 80 Year
  Sex: Female

DRUGS (3)
  1. PALBOCICLIB [Suspect]
     Active Substance: PALBOCICLIB
     Dosage: 125 MG, 1X/DAY, 21DAYS IN AM
     Route: 048
     Dates: start: 20211220
  2. FULVESTRANT [Concomitant]
     Active Substance: FULVESTRANT
     Dosage: 500 MG (X 3 MONTH)
     Route: 030
     Dates: start: 202112
  3. FULVESTRANT [Concomitant]
     Active Substance: FULVESTRANT
     Dosage: 500 MG ,3 DOSE IN 3 MONTHS
     Route: 030

REACTIONS (8)
  - Somnolence [Unknown]
  - Dry mouth [Unknown]
  - Cough [Unknown]
  - Decreased appetite [Unknown]
  - Sluggishness [Unknown]
  - Haemoglobin decreased [Unknown]
  - White blood cell count decreased [Unknown]
  - Platelet count decreased [Unknown]
